FAERS Safety Report 12677912 (Version 1)
Quarter: 2016Q3

REPORT INFORMATION
  Report Type: Spontaneous
  Country: US (occurrence: US)
  Receive Date: 20160823
  Receipt Date: 20160823
  Transmission Date: 20161109
  Serious: No
  Sender: FDA-Public Use
  Company Number: US-TARO-2016TAR00423

PATIENT
  Age: 68 Year
  Sex: Male
  Weight: 97.51 kg

DRUGS (6)
  1. LEVOTHYROXINE SODIUM. [Concomitant]
     Active Substance: LEVOTHYROXINE SODIUM
     Dosage: 50 ?G, 1X/DAY
  2. WARFARIN SODIUM TABLETS USP 7.5MG [Suspect]
     Active Substance: WARFARIN SODIUM
     Indication: PULMONARY EMBOLISM
     Dosage: 7.5 MG, 1X/DAY
     Route: 048
     Dates: start: 201603, end: 20160506
  3. WARFARIN SODIUM TABLETS USP 7.5MG [Suspect]
     Active Substance: WARFARIN SODIUM
     Dosage: 7.5 MG, EVERY 48 HOURS
     Dates: start: 20160506, end: 20160512
  4. WARFARIN SODIUM TABLETS USP 7.5MG [Suspect]
     Active Substance: WARFARIN SODIUM
     Dosage: 7.5 MG, 1X/DAY
  5. TAMSULOSIN HYDROCHLORIDE. [Concomitant]
     Active Substance: TAMSULOSIN HYDROCHLORIDE
     Dosage: 0.4 MG, 1X/DAY
  6. LOSARTAN POTASSIUM AND HYDROCHLOROTHIAZIDE 50/12.5 MG [Concomitant]
     Dosage: 1 DOSAGE UNITS, 1X/DAY

REACTIONS (2)
  - Product substitution issue [Not Recovered/Not Resolved]
  - International normalised ratio decreased [Recovered/Resolved]

NARRATIVE: CASE EVENT DATE: 201603
